FAERS Safety Report 6623949-8 (Version None)
Quarter: 2010Q1

REPORT INFORMATION
  Report Type: 
  Country: None (occurrence: None)
  Receive Date: 20100304
  Receipt Date: 20100216
  Transmission Date: 20100710
  Serious: Yes (Hospitalization, Disabling)
  Sender: FDA-Public Use
  Company Number: ACO_00643_2010

PATIENT
  Sex: Female
  Weight: 36 kg

DRUGS (3)
  1. TIZANIDINE HCL [Suspect]
     Indication: SPINAL OSTEOARTHRITIS
     Dosage: 1 MG, DAILY, ORAL
     Route: 048
     Dates: start: 20090409, end: 20090605
  2. MOBIC [Suspect]
     Indication: SPINAL OSTEOARTHRITIS
     Dosage: 10 MG, DAILY, ORAL
     Route: 048
     Dates: start: 20090409, end: 20090605
  3. MUCOSTA (MUCOSTA - REBAMIPIDE) 100 MG (NOT SPECIFIED) [Suspect]
     Indication: GASTRITIS PROPHYLAXIS
     Dosage: 100 MG, DAILY, ORAL
     Route: 048
     Dates: start: 20090409, end: 20090605

REACTIONS (3)
  - ALANINE AMINOTRANSFERASE INCREASED [None]
  - ASPARTATE AMINOTRANSFERASE INCREASED [None]
  - RHABDOMYOLYSIS [None]
